FAERS Safety Report 7389611-1 (Version None)
Quarter: 2011Q2

REPORT INFORMATION
  Report Type: 
  Country: None (occurrence: None)
  Receive Date: 20110401
  Receipt Date: 20110323
  Transmission Date: 20111010
  Serious: Yes (Hospitalization)
  Sender: FDA-Public Use
  Company Number: FR-ASTRAZENECA-2011SE16965

PATIENT
  Age: 64 Year
  Sex: Female

DRUGS (8)
  1. CLAMOXYL [Suspect]
     Dates: start: 20101216, end: 20101216
  2. LASIX [Suspect]
     Dates: start: 20101228, end: 20110101
  3. NEXIUM [Suspect]
     Route: 048
     Dates: start: 20101217, end: 20110126
  4. CEFTRIAXONE [Suspect]
     Dates: start: 20101217, end: 20101217
  5. CIFLOX [Suspect]
     Dates: start: 20110107, end: 20110110
  6. CIFLOX [Suspect]
     Dates: start: 20101217, end: 20101226
  7. LASIX [Suspect]
     Dates: start: 20110106, end: 20110114
  8. LASIX [Suspect]
     Dates: start: 20101218, end: 20101221

REACTIONS (1)
  - DRUG RASH WITH EOSINOPHILIA AND SYSTEMIC SYMPTOMS [None]
